FAERS Safety Report 7985381-4 (Version None)
Quarter: 2011Q4

REPORT INFORMATION
  Report Type: 
  Country: None (occurrence: None)
  Receive Date: 20111216
  Receipt Date: 20111201
  Transmission Date: 20120403
  Serious: Yes (Hospitalization, Other)
  Sender: FDA-Public Use
  Company Number: DE-ROCHE-1019809

PATIENT
  Age: 69 Year
  Sex: Female

DRUGS (6)
  1. ARCOXIA [Concomitant]
  2. CLOPIDOGREL BISULFATE [Suspect]
     Indication: PRODUCT USED FOR UNKNOWN INDICATION
  3. ACTEMRA [Suspect]
     Indication: RHEUMATOID ARTHRITIS
     Dates: start: 20100301
  4. VERAPAMIL [Concomitant]
  5. LORZAAR [Concomitant]
  6. ETANERCEPT [Concomitant]
     Indication: RHEUMATOID ARTHRITIS
     Dates: start: 20091201, end: 20100301

REACTIONS (9)
  - VARICES OESOPHAGEAL [None]
  - HYPERSPLENISM [None]
  - LEUKOPENIA [None]
  - THROMBOCYTOPENIA [None]
  - HEPATIC CIRRHOSIS [None]
  - ANORECTAL VARICES [None]
  - CHOLELITHIASIS [None]
  - PORTAL HYPERTENSION [None]
  - ANAL HAEMORRHAGE [None]
